FAERS Safety Report 15838723 (Version 2)
Quarter: 2019Q1

REPORT INFORMATION
  Report Type: Report from Study
  Country: BR (occurrence: BR)
  Receive Date: 20190117
  Receipt Date: 20190117
  Transmission Date: 20190417
  Serious: Yes (Other)
  Sender: FDA-Public Use
  Company Number: PHHY2019BR006454

PATIENT
  Sex: Female
  Weight: 63 kg

DRUGS (6)
  1. DIOVAN [Suspect]
     Active Substance: VALSARTAN
     Indication: HYPERTENSION
     Dosage: 1 DF, QD
     Route: 048
     Dates: start: 2010
  2. CONCOR [Concomitant]
     Active Substance: BISOPROLOL FUMARATE
     Indication: PRODUCT USED FOR UNKNOWN INDICATION
     Dosage: UNK
     Route: 065
  3. ADDERA D3 [Concomitant]
     Active Substance: CHOLECALCIFEROL
     Indication: PRODUCT USED FOR UNKNOWN INDICATION
     Dosage: UNK
     Route: 065
  4. VALSARTAN. [Suspect]
     Active Substance: VALSARTAN
     Indication: PRODUCT USED FOR UNKNOWN INDICATION
     Dosage: UNK
     Route: 065
  5. HYDROCHLOROTHIAZIDE. [Interacting]
     Active Substance: HYDROCHLOROTHIAZIDE
     Indication: POLYURIA
     Dosage: 25 MG, UNK (STARTED IN 2006 OR 2007)
     Route: 048
     Dates: start: 2006
  6. ATENOLOL. [Interacting]
     Active Substance: ATENOLOL
     Indication: PRODUCT USED FOR UNKNOWN INDICATION
     Dosage: 1 DF, QD (STARTED IN  2006 OR 2007)
     Route: 048
     Dates: start: 2006, end: 201809

REACTIONS (11)
  - Stenosis [Unknown]
  - Blood cholesterol increased [Recovering/Resolving]
  - Vasomotor rhinitis [Recovering/Resolving]
  - Weight decreased [Recovering/Resolving]
  - Arrhythmia [Recovered/Resolved]
  - Dyspnoea [Unknown]
  - Blood triglycerides increased [Unknown]
  - Drug interaction [Unknown]
  - Thyroid mass [Recovered/Resolved]
  - Cough [Unknown]
  - Hypertension [Unknown]

NARRATIVE: CASE EVENT DATE: 2008
